FAERS Safety Report 13312040 (Version 3)
Quarter: 2017Q4

REPORT INFORMATION
  Report Type: Report from Study
  Country: None (occurrence: CH)
  Receive Date: 20170308
  Receipt Date: 20171220
  Transmission Date: 20180320
  Serious: Yes (Hospitalization)
  Sender: FDA-Public Use
  Company Number: CH-ABBVIE-17P-151-1878421-00

PATIENT
  Age: 72 Year
  Sex: Female

DRUGS (1)
  1. DUODOPA [Suspect]
     Active Substance: CARBIDOPA\LEVODOPA
     Indication: PARKINSON^S DISEASE
     Dosage: MORING DOSE: 7,5ML. CONTINUOUS RATE DAY: 2,4ML/H, EXTRA DOSE: 1,0ML; 16H THERAPY
     Route: 050
     Dates: start: 20160126

REACTIONS (5)
  - Fall [Unknown]
  - Upper limb fracture [Unknown]
  - Abdominal infection [Unknown]
  - Abdominal pain [Unknown]
  - Intra-abdominal fluid collection [Unknown]

NARRATIVE: CASE EVENT DATE: 20170228
